FAERS Safety Report 7285584-0 (Version None)
Quarter: 2011Q1

REPORT INFORMATION
  Report Type: 
  Country: None (occurrence: None)
  Receive Date: 20110210
  Receipt Date: 20110207
  Transmission Date: 20110831
  Serious: Yes (Hospitalization)
  Sender: FDA-Public Use
  Company Number: A0779039A

PATIENT
  Age: 56 Year
  Sex: Female
  Weight: 116.8 kg

DRUGS (11)
  1. AVANDIA [Suspect]
     Indication: DIABETES MELLITUS
     Dosage: 8MG PER DAY
     Route: 048
     Dates: start: 20000922, end: 20070201
  2. LIPITOR [Concomitant]
  3. EFFEXOR [Concomitant]
  4. UNIVASC [Concomitant]
  5. METFORMIN [Concomitant]
  6. GLUCOTROL [Concomitant]
  7. DIOVAN [Concomitant]
  8. HYDROCODONE BITARTRATE [Concomitant]
  9. PRAVACHOL [Concomitant]
  10. NAPROXEN [Concomitant]
  11. CELEXA [Concomitant]

REACTIONS (4)
  - ISCHAEMIC CARDIOMYOPATHY [None]
  - CORONARY ARTERY DISEASE [None]
  - CARDIAC FAILURE CONGESTIVE [None]
  - MYOCARDIAL ISCHAEMIA [None]
